FAERS Safety Report 6639330 (Version 4)
Quarter: 2012Q4

REPORT INFORMATION
  Report Type: 
  Country: FR (occurrence: FR)
  Receive Date: 20051013
  Receipt Date: 20121226
  Transmission Date: 20130627
  Serious: Yes (Hospitalization, Other)
  Sender: FDA-Public Use
  Company Number: FR-PFIZER INC-2005136912

PATIENT
  Age: 37 Year
  Sex: Female
  Weight: 55 kg

DRUGS (19)
  1. ADVIL [Suspect]
     Indication: CONJUNCTIVITIS
     Dosage: UNK
     Route: 048
     Dates: start: 20050822, end: 20050901
  2. ADVIL [Suspect]
     Indication: PHARYNGITIS
  3. ADVIL [Suspect]
     Indication: FEVER
  4. ADVIL [Suspect]
     Indication: OROPHARYNGEAL PAIN
  5. AMOXICILLIN [Suspect]
     Indication: PHARYNGITIS
     Dosage: UNK
     Route: 065
     Dates: start: 20050822, end: 20050826
  6. AMOXICILLIN [Suspect]
     Indication: FEVER
  7. AMOXICILLIN [Suspect]
     Indication: CONJUNCTIVITIS
  8. ATARAX [Suspect]
     Indication: ANXIETY
     Dosage: unknown
     Route: 048
     Dates: start: 20050812, end: 20050812
  9. ATARAX [Suspect]
     Dosage: UNKNOWN
     Route: 065
     Dates: start: 20050816, end: 20050818
  10. ATARAX [Suspect]
     Dosage: UNKNOWN
     Route: 065
     Dates: start: 20050827, end: 20050828
  11. VALERIAN [Suspect]
     Indication: SLEEP DISORDER
     Dosage: UNK
     Route: 048
     Dates: start: 20050530
  12. PENICILLIN NOS [Suspect]
     Indication: CONJUNCTIVITIS
     Dosage: UNK
     Route: 065
     Dates: start: 20050822, end: 20050826
  13. PENICILLIN NOS [Suspect]
     Indication: PHARYNGITIS
  14. QUESTRAN [Suspect]
     Dosage: UNKNOWN
     Route: 065
     Dates: start: 20050907
  15. QUESTRAN [Suspect]
     Dosage: UNKNOWN
     Route: 065
     Dates: start: 2005, end: 20050921
  16. TYPHOID VACCINE [Concomitant]
     Route: 048
  17. HEPATITIS B VACCINE [Concomitant]
  18. JASMINE [Concomitant]
     Route: 048
  19. ADEPAL [Concomitant]
     Indication: ORAL CONTRACEPTION
     Route: 065

REACTIONS (7)
  - Hepatitis cholestatic [Recovered/Resolved]
  - Stevens-Johnson syndrome [Recovered/Resolved]
  - Keratitis [Recovering/Resolving]
  - Lymphadenopathy [Not Recovered/Not Resolved]
  - Anxiety [Not Recovered/Not Resolved]
  - Pharyngitis [Unknown]
  - Pyrexia [Unknown]
